FAERS Safety Report 5752692-2 (Version None)
Quarter: 2008Q2

REPORT INFORMATION
  Report Type: 
  Country: None (occurrence: None)
  Receive Date: 20080527
  Receipt Date: 20080527
  Transmission Date: 20081010
  Serious: Yes (Life-Threatening)
  Sender: FDA-Public Use
  Company Number: None

PATIENT
  Age: 27 Year
  Sex: Female
  Weight: 65.318 kg

DRUGS (1)
  1. NEURONTIN [Suspect]
     Indication: COMPLEX REGIONAL PAIN SYNDROME
     Dosage: 300MG 3X'S A DAY PO
     Route: 048
     Dates: start: 20080209, end: 20080426

REACTIONS (7)
  - AMNESIA [None]
  - FEELING ABNORMAL [None]
  - INJURY [None]
  - NEAR DROWNING [None]
  - OVERDOSE [None]
  - ROAD TRAFFIC ACCIDENT [None]
  - SUICIDE ATTEMPT [None]
